FAERS Safety Report 13728884 (Version 6)
Quarter: 2021Q1

REPORT INFORMATION
  Report Type: Spontaneous
  Country: US (occurrence: US)
  Receive Date: 20170707
  Receipt Date: 20210202
  Transmission Date: 20210419
  Serious: No
  Sender: FDA-Public Use
  Company Number: US-PFIZER INC-2017294637

PATIENT
  Age: 72 Year
  Sex: Female

DRUGS (3)
  1. LYRICA [Suspect]
     Active Substance: PREGABALIN
     Indication: ANKLE DEFORMITY
     Dosage: 75 MG, 1X/DAY (1 TABLET PO BEFORE BED)
     Route: 048
  2. LYRICA [Suspect]
     Active Substance: PREGABALIN
     Indication: FOOT DEFORMITY
     Dosage: 75 MG, 1X/DAY (TAKE 1 (ONE) CAPSULE BY MOUTH AT BEDTIME)
     Route: 048
  3. LYRICA [Suspect]
     Active Substance: PREGABALIN
     Indication: DIABETIC NEUROPATHY
     Dosage: UNK
     Route: 048
     Dates: start: 2012

REACTIONS (1)
  - No adverse event [Unknown]
